FAERS Safety Report 13164128 (Version 1)
Quarter: 2017Q1

REPORT INFORMATION
  Report Type: Spontaneous
  Country: US (occurrence: US)
  Receive Date: 20170130
  Receipt Date: 20170130
  Transmission Date: 20170428
  Serious: Yes (Hospitalization)
  Sender: FDA-Public Use
  Company Number: US-LPDUSPRD-20170065

PATIENT
  Age: 8 Year
  Sex: Male

DRUGS (3)
  1. BUSULFAN INJECTION (0517-0920-01) [Suspect]
     Active Substance: BUSULFAN
     Dosage: 0.8 MG/KG Q6H
     Route: 042
  2. FLUDARABINE [Suspect]
     Active Substance: FLUDARABINE PHOSPHATE
     Dosage: 30MG/M2
     Route: 065
  3. MELPHALAN [Suspect]
     Active Substance: MELPHALAN
     Dosage: 100 MG/M2
     Route: 065

REACTIONS (6)
  - Acute respiratory distress syndrome [Recovered/Resolved]
  - Gastrointestinal disorder [Recovered/Resolved]
  - Stomatitis [Recovered/Resolved]
  - Mucosal inflammation [Recovered/Resolved]
  - Graft versus host disease in gastrointestinal tract [Recovered/Resolved]
  - Bacteraemia [Recovered/Resolved]
